FAERS Safety Report 10167904 (Version 1)
Quarter: 2014Q2

REPORT INFORMATION
  Report Type: Spontaneous
  Country: FR (occurrence: FR)
  Receive Date: 20140512
  Receipt Date: 20140512
  Transmission Date: 20141212
  Serious: Yes (Death)
  Sender: FDA-Public Use
  Company Number: FR-BRISTOL-MYERS SQUIBB COMPANY-20702155

PATIENT
  Sex: Male

DRUGS (4)
  1. REYATAZ CAPS 150 MG [Suspect]
     Dosage: 1DF = 2CAPS
     Route: 064
  2. TRUVADA [Suspect]
     Route: 064
  3. NORVIR [Suspect]
     Route: 064
  4. ENTOCORT [Suspect]
     Dosage: 3MG?1DF = 1 UNIT NOS
     Route: 064

REACTIONS (1)
  - Foetal growth restriction [Fatal]
